FAERS Safety Report 14323705 (Version 1)
Quarter: 2017Q4

REPORT INFORMATION
  Report Type: Spontaneous
  Country: DE (occurrence: DE)
  Receive Date: 20171226
  Receipt Date: 20171226
  Transmission Date: 20180321
  Serious: Yes (Other)
  Sender: FDA-Public Use
  Company Number: PHHY2017DE188388

PATIENT
  Sex: Male

DRUGS (3)
  1. ASPIRIN. [Suspect]
     Active Substance: ASPIRIN
     Indication: PRODUCT USED FOR UNKNOWN INDICATION
     Dosage: UNK
     Route: 065
  2. FSME-IMMUN [Suspect]
     Active Substance: TICK-BORNE ENCEPHALITIS VACCINE
     Dosage: SINGLE DOSE
     Route: 065
     Dates: start: 20170807, end: 20170807
  3. FSME-IMMUN [Suspect]
     Active Substance: TICK-BORNE ENCEPHALITIS VACCINE
     Indication: IMMUNISATION
     Dosage: SINGLE DOSE
     Route: 065
     Dates: start: 20170711, end: 20170711

REACTIONS (2)
  - Polymyalgia rheumatica [Unknown]
  - Neuralgia [Recovering/Resolving]

NARRATIVE: CASE EVENT DATE: 20170910
